FAERS Safety Report 19119661 (Version 2)
Quarter: 2021Q2

REPORT INFORMATION
  Report Type: Spontaneous
  Country: US (occurrence: US)
  Receive Date: 20210412
  Receipt Date: 20210627
  Transmission Date: 20210717
  Serious: Yes (Life-Threatening, Hospitalization, Other)
  Sender: FDA-Public Use
  Company Number: US-SA-2021SA117171

PATIENT
  Age: 18 Year
  Sex: Male

DRUGS (2)
  1. DUPIXENT [Suspect]
     Active Substance: DUPILUMAB
     Dosage: 300 UNK, QOW
     Route: 058
     Dates: start: 2021
  2. DUPIXENT [Suspect]
     Active Substance: DUPILUMAB
     Indication: DERMATITIS ATOPIC
     Dosage: 300 MG, QOW
     Route: 058
     Dates: start: 201812

REACTIONS (10)
  - Muscle spasms [Unknown]
  - Pruritus [Recovering/Resolving]
  - Dermatitis atopic [Unknown]
  - Chills [Recovered/Resolved]
  - Rebound eczema [Recovering/Resolving]
  - Coccidioidomycosis [Unknown]
  - Night sweats [Recovered/Resolved]
  - Pyrexia [Recovered/Resolved]
  - Hepatomegaly [Unknown]
  - Lymphadenopathy [Unknown]

NARRATIVE: CASE EVENT DATE: 2021
